FAERS Safety Report 20803428 (Version 1)
Quarter: 2022Q2

REPORT INFORMATION
  Report Type: Spontaneous
  Country: DE (occurrence: DE)
  Receive Date: 20220509
  Receipt Date: 20220509
  Transmission Date: 20220721
  Serious: Yes (Death, Other)
  Sender: FDA-Public Use
  Company Number: DE-PFIZER INC-202200647486

PATIENT
  Age: 62 Year
  Sex: Male

DRUGS (1)
  1. INOTUZUMAB OZOGAMICIN [Suspect]
     Active Substance: INOTUZUMAB OZOGAMICIN
     Dosage: UNK, CYCLIC (2 CYCLES)
     Dates: start: 201404, end: 201406

REACTIONS (7)
  - Death [Fatal]
  - Ascites [Unknown]
  - Renal impairment [Unknown]
  - Hepatic vein occlusion [Unknown]
  - Blood bilirubin increased [Unknown]
  - Weight increased [Unknown]
  - Neoplasm recurrence [Unknown]
